FAERS Safety Report 8576104 (Version 3)
Quarter: 2012Q4

REPORT INFORMATION
  Report Type: 
  Country: US (occurrence: US)
  Receive Date: 20120523
  Receipt Date: 20121129
  Transmission Date: 20130627
  Serious: Yes (Hospitalization)
  Sender: FDA-Public Use
  Company Number: US-BAYER-2012-049616

PATIENT
  Age: 24 Year
  Sex: Female
  Weight: 61.22 kg

DRUGS (8)
  1. YAZ [Suspect]
     Indication: CONTRACEPTION
     Dosage: UNK
     Dates: start: 2005, end: 201004
  2. YASMIN [Suspect]
     Indication: CONTRACEPTION
     Dosage: UNK
     Dates: start: 2005, end: 201004
  3. PHENERGAN [Concomitant]
  4. DILAUDID [Concomitant]
  5. TORADOL [Concomitant]
  6. I.V. SOLUTIONS [Concomitant]
  7. KEPPRA [Concomitant]
     Indication: CONVULSION
     Dosage: 500 mg, BID
  8. ATIVAN [Concomitant]
     Indication: HEADACHE

REACTIONS (11)
  - Cerebral haematoma [None]
  - Subarachnoid haemorrhage [None]
  - Cerebrovascular accident [None]
  - Injury [None]
  - Pain [None]
  - Emotional distress [None]
  - General physical health deterioration [None]
  - Anxiety [None]
  - Pain [None]
  - Migraine [None]
  - Amnesia [None]
